FAERS Safety Report 4668537-8 (Version None)
Quarter: 2005Q2

REPORT INFORMATION
  Report Type: 
  Country: None (occurrence: None)
  Receive Date: 20050518
  Receipt Date: 20050427
  Transmission Date: 20051028
  Serious: Yes (Death, Hospitalization)
  Sender: FDA-Public Use
  Company Number: B0379350A

PATIENT
  Age: 9 Year
  Sex: Male

DRUGS (1)
  1. ALBENZA [Suspect]
     Dates: start: 20040112

REACTIONS (3)
  - CARDIAC ARREST [None]
  - CYANOSIS [None]
  - PYREXIA [None]
